FAERS Safety Report 25665539 (Version 1)
Quarter: 2025Q3

REPORT INFORMATION
  Report Type: Spontaneous
  Country: EU (occurrence: EU)
  Receive Date: 20250811
  Receipt Date: 20250811
  Transmission Date: 20251020
  Serious: Yes (Life-Threatening, Hospitalization)
  Sender: MYLAN
  Company Number: None

PATIENT
  Age: 24 Year
  Sex: Male

DRUGS (16)
  1. LYRICA [Suspect]
     Active Substance: PREGABALIN
     Indication: Product used for unknown indication
  2. LYRICA [Suspect]
     Active Substance: PREGABALIN
     Route: 065
  3. LYRICA [Suspect]
     Active Substance: PREGABALIN
     Route: 065
  4. LYRICA [Suspect]
     Active Substance: PREGABALIN
  5. TRAMADOL [Suspect]
     Active Substance: TRAMADOL
     Indication: Product used for unknown indication
  6. TRAMADOL [Suspect]
     Active Substance: TRAMADOL
     Route: 065
  7. TRAMADOL [Suspect]
     Active Substance: TRAMADOL
     Route: 065
  8. TRAMADOL [Suspect]
     Active Substance: TRAMADOL
  9. BACLOFEN [Suspect]
     Active Substance: BACLOFEN
     Indication: Product used for unknown indication
  10. BACLOFEN [Suspect]
     Active Substance: BACLOFEN
     Route: 065
  11. BACLOFEN [Suspect]
     Active Substance: BACLOFEN
     Route: 065
  12. BACLOFEN [Suspect]
     Active Substance: BACLOFEN
  13. LORAZEPAM [Suspect]
     Active Substance: LORAZEPAM
     Indication: Product used for unknown indication
  14. LORAZEPAM [Suspect]
     Active Substance: LORAZEPAM
     Route: 065
  15. LORAZEPAM [Suspect]
     Active Substance: LORAZEPAM
     Route: 065
  16. LORAZEPAM [Suspect]
     Active Substance: LORAZEPAM

REACTIONS (2)
  - Coma [Recovered/Resolved]
  - Drug use disorder [Unknown]
